FAERS Safety Report 6491690-0 (Version None)
Quarter: 2009Q4

REPORT INFORMATION
  Report Type: 
  Country: None (occurrence: None)
  Receive Date: 20091211
  Receipt Date: 20091207
  Transmission Date: 20100525
  Serious: No
  Sender: FDA-Public Use
  Company Number: DE-B.I. PHARMACEUTICALS,INC./RIDGEFIELD-2009-DE-07551DE

PATIENT
  Sex: Female

DRUGS (6)
  1. SIFROL [Suspect]
     Dosage: THERAPEUTIC AMOUNT
     Route: 048
  2. AMANTADINE HCL [Suspect]
     Route: 048
  3. APOMORPHIN [Suspect]
     Route: 042
  4. CLOZAPINE [Suspect]
     Route: 048
  5. PAROXETINE HCL [Suspect]
     Route: 048
  6. STALEVO 100 [Suspect]
     Route: 048

REACTIONS (5)
  - ASPIRATION [None]
  - DYSKINESIA [None]
  - MEDICATION ERROR [None]
  - PYREXIA [None]
  - SOMNOLENCE [None]
